FAERS Safety Report 15779735 (Version 1)
Quarter: 2019Q1

REPORT INFORMATION
  Report Type: Spontaneous
  Country: US (occurrence: US)
  Receive Date: 20190101
  Receipt Date: 20190101
  Transmission Date: 20190417
  Serious: No
  Sender: FDA-Public Use
  Company Number: US-ASTRAZENECA-2018SF61891

PATIENT
  Sex: Female

DRUGS (2)
  1. FARXIGA [Suspect]
     Active Substance: DAPAGLIFLOZIN PROPANEDIOL
     Route: 048
  2. FARXIGA [Suspect]
     Active Substance: DAPAGLIFLOZIN PROPANEDIOL
     Dosage: TOOK 2 TABLETS OF FARXIGA 10 MG TODAY INSTEAD OF 1
     Route: 048

REACTIONS (2)
  - Incorrect dose administered [Unknown]
  - Pollakiuria [Unknown]

NARRATIVE: CASE EVENT DATE: 20181206
